FAERS Safety Report 7310463-X (Version None)
Quarter: 2011Q1

REPORT INFORMATION
  Report Type: 
  Country: None (occurrence: None)
  Receive Date: 20110210
  Receipt Date: 20110120
  Transmission Date: 20110831
  Serious: Yes (Death)
  Sender: FDA-Public Use
  Company Number: AE11-006-1

PATIENT
  Age: 82 Year
  Sex: Female

DRUGS (5)
  1. PROPRANOLOL ER 60 MG (PROPRANOLOL) [Suspect]
  2. LORCET-HD [Suspect]
  3. DOCUSATE (DOCUSATE) [Suspect]
  4. CLOZAPINE [Suspect]
  5. LITHIUM (LITHIUM) [Suspect]

REACTIONS (2)
  - CARDIAC ARREST [None]
  - RESPIRATORY ARREST [None]
